FAERS Safety Report 20011773 (Version 2)
Quarter: 2021Q4

REPORT INFORMATION
  Report Type: Report from Study
  Country: CN (occurrence: CN)
  Receive Date: 20211029
  Receipt Date: 20211110
  Transmission Date: 20220303
  Serious: Yes (Other)
  Sender: FDA-Public Use
  Company Number: CN-BOEHRINGERINGELHEIM-2021-BI-133624

PATIENT

DRUGS (1)
  1. TENECTEPLASE [Suspect]
     Active Substance: TENECTEPLASE
     Indication: Ischaemic stroke
     Dosage: TOTAL SINGLE DOSE OF 0.25 MG/KG.
     Route: 065

REACTIONS (1)
  - Heart disease congenital [Unknown]
